FAERS Safety Report 8949612 (Version 1)
Quarter: 2012Q4

REPORT INFORMATION
  Report Type: 
  Country: VE (occurrence: VE)
  Receive Date: 20121206
  Receipt Date: 20121206
  Transmission Date: 20130627
  Serious: Yes (Other)
  Sender: FDA-Public Use
  Company Number: VE-BAYER-2012-124440

PATIENT
  Age: 46 Year
  Sex: Female

DRUGS (2)
  1. ANTIBIOTICS [Concomitant]
  2. AVELOX [Suspect]
     Indication: BILIARY ABSCESS
     Dosage: 400 mg, QD
     Route: 048
     Dates: start: 20120604, end: 20120608

REACTIONS (2)
  - Pyrexia [Recovered/Resolved]
  - Drug ineffective [Recovered/Resolved]
